FAERS Safety Report 24156118 (Version 1)
Quarter: 2024Q3

REPORT INFORMATION
  Report Type: Spontaneous
  Country: US (occurrence: None)
  Receive Date: 20240730
  Receipt Date: 20240730
  Transmission Date: 20241016
  Serious: Yes (Hospitalization)
  Sender: Public
  Company Number: None

PATIENT
  Age: 76 Year
  Sex: Male

DRUGS (1)
  1. AMBRISENTAN [Suspect]
     Active Substance: AMBRISENTAN
     Indication: Pulmonary arterial hypertension
     Dosage: FREQUENCY : DAILY;?
     Route: 048
     Dates: start: 20131122

REACTIONS (5)
  - Back pain [None]
  - Dehydration [None]
  - Confusional state [None]
  - Intervertebral discitis [None]
  - Connective tissue disorder [None]

NARRATIVE: CASE EVENT DATE: 20240628
